FAERS Safety Report 6942843-6 (Version None)
Quarter: 2010Q3

REPORT INFORMATION
  Report Type: 
  Country: None (occurrence: None)
  Receive Date: 20100826
  Receipt Date: 20100812
  Transmission Date: 20110219
  Serious: Yes (Hospitalization, Other)
  Sender: FDA-Public Use
  Company Number: SE-ELI_LILLY_AND_COMPANY-SE201008003472

PATIENT
  Age: 39 Year
  Sex: Male

DRUGS (9)
  1. FONTEX [Suspect]
     Indication: ANXIETY
     Dosage: 20 MG, DAILY (1/D)
     Route: 048
     Dates: start: 20100505, end: 20100607
  2. RITALIN [Concomitant]
     Dosage: 20 MG, DAILY (1/D)
     Route: 048
     Dates: start: 20091201
  3. SYMBICORT [Concomitant]
     Dosage: UNK, UNKNOWN
     Route: 065
  4. OMEPRAZOLE [Concomitant]
     Dosage: UNK, UNKNOWN
     Route: 065
  5. LERGIGAN [Concomitant]
     Dosage: UNK, UNKNOWN
     Route: 065
  6. PROPAVAN [Concomitant]
     Dosage: UNK, UNKNOWN
     Route: 065
  7. ANTABUSE [Concomitant]
     Dosage: UNK, UNKNOWN
     Route: 065
  8. VENTOLIN [Concomitant]
     Dosage: UNK, UNKNOWN
     Route: 065
  9. OXASCAND [Concomitant]
     Dosage: UNK, UNKNOWN
     Route: 065

REACTIONS (2)
  - MOVEMENT DISORDER [None]
  - PNEUMONIA [None]
